FAERS Safety Report 4365632-8 (Version None)
Quarter: 2004Q2

REPORT INFORMATION
  Report Type: 
  Country: None (occurrence: None)
  Receive Date: 20040520
  Receipt Date: 20040512
  Transmission Date: 20050107
  Serious: Yes (Death)
  Sender: FDA-Public Use
  Company Number: 2004-05-0726

PATIENT
  Weight: 75 kg

DRUGS (2)
  1. RIBAVIRIN [Suspect]
  2. INTRON A [Suspect]

REACTIONS (1)
  - DEATH [None]
